FAERS Safety Report 9282434 (Version 1)
Quarter: 2013Q2

REPORT INFORMATION
  Report Type: Spontaneous
  Country: US (occurrence: None)
  Receive Date: 20130506
  Receipt Date: 20130506
  Transmission Date: 20140414
  Serious: Yes (Other)
  Sender: FDA-Public Use
  Company Number: 2013SA043629

PATIENT
  Sex: Female

DRUGS (1)
  1. MENTHOL/PRAMOXINE HYDROCHLORIDE [Suspect]
     Indication: PRURITUS
     Dates: start: 20130421

REACTIONS (3)
  - Skin atrophy [None]
  - Skin wrinkling [None]
  - Application site burn [None]
